FAERS Safety Report 10164036 (Version 2)
Quarter: 2014Q4

REPORT INFORMATION
  Report Type: Spontaneous
  Country: US (occurrence: US)
  Receive Date: 20140510
  Receipt Date: 20141205
  Transmission Date: 20150528
  Serious: No
  Sender: FDA-Public Use
  Company Number: US-BRISTOL-MYERS SQUIBB COMPANY-19836907

PATIENT
  Age: 73 Year
  Sex: Male
  Weight: 136.05 kg

DRUGS (8)
  1. ALLOPURINOL. [Concomitant]
     Active Substance: ALLOPURINOL
  2. BENICAR [Concomitant]
     Active Substance: OLMESARTAN MEDOXOMIL
  3. LASIX [Concomitant]
     Active Substance: FUROSEMIDE
  4. BYETTA [Suspect]
     Active Substance: EXENATIDE
     Indication: TYPE 2 DIABETES MELLITUS
     Dosage: NOV12-JUN13;RESTART:01NOV13.?10MCG:20FEB14?LOT# C199747A EXP: AUG15
     Route: 058
     Dates: start: 201211
  5. ATENOLOL. [Concomitant]
     Active Substance: ATENOLOL
  6. WARFARIN [Concomitant]
     Active Substance: WARFARIN
  7. GLYBURIDE. [Suspect]
     Active Substance: GLYBURIDE
     Indication: DIABETES MELLITUS
     Route: 048
     Dates: start: 201211
  8. OMEPRAZOLE. [Concomitant]
     Active Substance: OMEPRAZOLE
     Dates: start: 201307

REACTIONS (8)
  - Nausea [Unknown]
  - Testis discomfort [Unknown]
  - Nervousness [Unknown]
  - Blood glucose fluctuation [Recovered/Resolved]
  - Incorrect product storage [Unknown]
  - Dysphagia [Unknown]
  - Weight decreased [Unknown]
  - Renal impairment [Unknown]

NARRATIVE: CASE EVENT DATE: 201211
